FAERS Safety Report 10949895 (Version 1)
Quarter: 2015Q1

REPORT INFORMATION
  Report Type: Spontaneous
  Country: US (occurrence: None)
  Receive Date: 20150323
  Receipt Date: 20150323
  Transmission Date: 20150721
  Serious: Yes (Other)
  Sender: FDA-Public Use
  Company Number: None

PATIENT
  Age: 53 Year
  Sex: Male
  Weight: 113.85 kg

DRUGS (10)
  1. CPAP MACHINE [Concomitant]
  2. ATORVASTATIN [Concomitant]
     Active Substance: ATORVASTATIN
  3. GABAPENTIN. [Concomitant]
     Active Substance: GABAPENTIN
  4. LANTUS [Concomitant]
     Active Substance: INSULIN GLARGINE
  5. AMLODAPINE [Concomitant]
  6. TRAMADOL [Concomitant]
     Active Substance: TRAMADOL
  7. NOVALOG INSULIN [Concomitant]
  8. LOSARTIN [Concomitant]
     Active Substance: LOSARTAN
  9. METOPROLOL [Concomitant]
     Active Substance: METOPROLOL
  10. ANDRODERM [Suspect]
     Active Substance: TESTOSTERONE
     Indication: SEXUAL DYSFUNCTION
     Dosage: 1 PATCH, ONCE DAILY, APPLIED TO A SURFACE, USUALLY THE SKIN
     Route: 061
     Dates: end: 20120916

REACTIONS (1)
  - Cerebrovascular accident [None]
